FAERS Safety Report 21626484 (Version 1)
Quarter: 2022Q4

REPORT INFORMATION
  Report Type: Spontaneous
  Country: US (occurrence: None)
  Receive Date: 20221122
  Receipt Date: 20221122
  Transmission Date: 20230113
  Serious: No
  Sender: FDA-Public Use
  Company Number: US-ROCHE-3064906

PATIENT
  Sex: Female
  Weight: 83.990 kg

DRUGS (1)
  1. LUCENTIS [Suspect]
     Active Substance: RANIBIZUMAB
     Indication: Product used for unknown indication
     Dosage: ONCE EVERY 8 TO 9 WEEKS?LAST DOSE WAS SOME TIME IN JUN/2022
     Route: 031
     Dates: start: 2021

REACTIONS (3)
  - Swelling [Not Recovered/Not Resolved]
  - Paranasal sinus discomfort [Not Recovered/Not Resolved]
  - Off label use [Unknown]
